FAERS Safety Report 5888187-5 (Version None)
Quarter: 2008Q3

REPORT INFORMATION
  Report Type: 
  Country: None (occurrence: None)
  Receive Date: 20080918
  Receipt Date: 20080903
  Transmission Date: 20090109
  Serious: Yes (Other)
  Sender: FDA-Public Use
  Company Number: GB-GENENTECH-263690

PATIENT
  Sex: Female

DRUGS (4)
  1. HERCEPTIN [Suspect]
     Indication: BREAST CANCER
     Dosage: 8 MG/KG, UNK
     Route: 065
     Dates: start: 20080205
  2. HERCEPTIN [Suspect]
     Dosage: 6 MG/KG, Q3W
     Route: 065
     Dates: start: 20080222, end: 20080610
  3. HERCEPTIN [Suspect]
     Dosage: 8 MG/KG, UNK
     Dates: start: 20080722
  4. CHEMOTHERAPY NOS [Concomitant]
     Indication: DRUG USE FOR UNKNOWN INDICATION

REACTIONS (1)
  - ABORTION SPONTANEOUS [None]
